FAERS Safety Report 20213060 (Version 1)
Quarter: 2021Q4

REPORT INFORMATION
  Report Type: Spontaneous
  Country: US (occurrence: US)
  Receive Date: 20211221
  Receipt Date: 20211221
  Transmission Date: 20220303
  Serious: No
  Sender: FDA-Public Use
  Company Number: US-SA-SAC20211216000666

PATIENT

DRUGS (1)
  1. LANTUS [Suspect]
     Active Substance: INSULIN GLARGINE
     Dosage: 45 UNITS IN THE MORNING AND 15 UNITS AT BEDTIME

REACTIONS (4)
  - Hypoglycaemia [Unknown]
  - Blood glucose increased [Unknown]
  - Glycosylated haemoglobin abnormal [Unknown]
  - Inappropriate schedule of product administration [Unknown]
